FAERS Safety Report 6381031-1 (Version None)
Quarter: 2009Q3

REPORT INFORMATION
  Report Type: 
  Country: None (occurrence: None)
  Receive Date: 20090925
  Receipt Date: 20090925
  Transmission Date: 20100115
  Serious: Yes (Hospitalization, Disabling)
  Sender: FDA-Public Use
  Company Number: None

PATIENT
  Sex: Female
  Weight: 106.5953 kg

DRUGS (3)
  1. LEVAQUIN [Suspect]
     Indication: URINARY TRACT INFECTION
     Dosage: 500MG ONCE DAILY 047
     Dates: start: 20090126, end: 20090204
  2. LEVAQUIN [Suspect]
     Indication: URINARY TRACT INFECTION
     Dosage: 500MG ONCE DAILY 047
     Dates: start: 20090326, end: 20090329
  3. LEVAQUIN [Suspect]

REACTIONS (3)
  - BEDRIDDEN [None]
  - DYSSTASIA [None]
  - GAIT DISTURBANCE [None]
